FAERS Safety Report 13434573 (Version 1)
Quarter: 2017Q2

REPORT INFORMATION
  Report Type: Spontaneous
  Country: US (occurrence: US)
  Receive Date: 20170413
  Receipt Date: 20170413
  Transmission Date: 20170830
  Serious: No
  Sender: FDA-Public Use
  Company Number: US-BAYER-2017-071110

PATIENT
  Age: 7 Year
  Sex: Male

DRUGS (1)
  1. CLARITIN [Suspect]
     Active Substance: LORATADINE
     Indication: NASAL CONGESTION
     Dosage: 2 DF, UNK
     Dates: start: 20170411

REACTIONS (1)
  - Intentional product misuse [Unknown]

NARRATIVE: CASE EVENT DATE: 20170411
